FAERS Safety Report 20529477 (Version 2)
Quarter: 2022Q1

REPORT INFORMATION
  Report Type: Spontaneous
  Country: JP (occurrence: JP)
  Receive Date: 20220228
  Receipt Date: 20220315
  Transmission Date: 20220423
  Serious: Yes (Other)
  Sender: FDA-Public Use
  Company Number: JP-BRISTOL-MYERS SQUIBB COMPANY-BMS-2022-001882

PATIENT
  Age: 6 Decade
  Sex: Male

DRUGS (4)
  1. OPDIVO [Suspect]
     Active Substance: NIVOLUMAB
     Indication: Pleural mesothelioma malignant
     Dosage: 240 MILLIGRAM
     Route: 041
     Dates: start: 20211006
  2. OPDIVO [Suspect]
     Active Substance: NIVOLUMAB
     Dosage: 240 MILLIGRAM
     Route: 041
     Dates: start: 20211021
  3. YERVOY [Suspect]
     Active Substance: IPILIMUMAB
     Indication: Pleural mesothelioma malignant
     Dosage: 60 MILLIGRAM
     Route: 041
     Dates: start: 20211006
  4. YERVOY [Suspect]
     Active Substance: IPILIMUMAB
     Dosage: 60 MILLIGRAM
     Route: 041
     Dates: start: 20211021

REACTIONS (1)
  - Skin disorder [Recovered/Resolved]

NARRATIVE: CASE EVENT DATE: 20211228
